FAERS Safety Report 6465655-9 (Version None)
Quarter: 2009Q4

REPORT INFORMATION
  Report Type: 
  Country: None (occurrence: None)
  Receive Date: 20091124
  Receipt Date: 20091109
  Transmission Date: 20100525
  Serious: Yes (Hospitalization, Other)
  Sender: FDA-Public Use
  Company Number: AUR-APL-2009-01266

PATIENT
  Age: 35 Year
  Sex: Female

DRUGS (4)
  1. STAVUDINE [Suspect]
     Indication: HIV INFECTION
     Dosage: 60MG, DAILY,
  2. EFAVIRENZ [Suspect]
     Indication: HIV INFECTION
     Dosage: 600MG, DAILY,
  3. LAMIVUDINE [Suspect]
     Indication: HIV INFECTION
     Dosage: 300MG - DAILY -
  4. ANITTUBERCULARS (UNSPECIFIED) [Suspect]
     Indication: HIV INFECTION
     Dosage: 300MG - DAILY -

REACTIONS (9)
  - BLOOD PRESSURE DECREASED [None]
  - CARDIOMEGALY [None]
  - GRANULOMA [None]
  - HEART RATE INCREASED [None]
  - IMMUNE RECONSTITUTION SYNDROME [None]
  - LYMPHADENOPATHY [None]
  - NECROSIS [None]
  - PERICARDITIS [None]
  - VENTRICULAR HYPOKINESIA [None]
